FAERS Safety Report 4576523-1 (Version None)
Quarter: 2005Q1

REPORT INFORMATION
  Report Type: 
  Country: None (occurrence: None)
  Receive Date: 20050119
  Receipt Date: 20040427
  Transmission Date: 20050727
  Serious: Yes (Hospitalization)
  Sender: FDA-Public Use
  Company Number: A03200401285

PATIENT
  Age: 64 Year
  Sex: Female
  Weight: 108.4097 kg

DRUGS (6)
  1. PLAVIX [Suspect]
     Indication: PERIPHERAL OCCLUSIVE DISEASE
     Dosage: 75 MG QD - ORAL
     Route: 048
     Dates: start: 20040403
  2. ACETYLSALICYLIC ACID [Concomitant]
  3. FOLIC ACID [Concomitant]
  4. VERAPAMIL [Concomitant]
  5. TRIAMTERENE AND HYDROCHLOROTHIAZIDE [Concomitant]
  6. POTASSIUM CHLORIDE [Concomitant]

REACTIONS (3)
  - CHEST DISCOMFORT [None]
  - DIZZINESS [None]
  - VOMITING [None]
